FAERS Safety Report 6022432-0 (Version None)
Quarter: 2008Q4

REPORT INFORMATION
  Report Type: 
  Country: None (occurrence: None)
  Receive Date: 20081221
  Receipt Date: 20081221
  Transmission Date: 20090506
  Serious: Yes (Life-Threatening, Hospitalization)
  Sender: FDA-Public Use
  Company Number: None

PATIENT
  Age: 74 Year
  Sex: Male
  Weight: 77.1115 kg

DRUGS (23)
  1. ABILIFY [Suspect]
     Indication: DEMENTIA
     Dates: start: 20080912, end: 20081001
  2. ABILIFY [Suspect]
     Indication: PSYCHOTIC DISORDER
     Dates: start: 20080912, end: 20081001
  3. ZYPREXA [Suspect]
     Indication: DEMENTIA
     Dates: start: 20081001, end: 20081220
  4. ZYPREXA [Suspect]
     Indication: PSYCHOTIC DISORDER
     Dates: start: 20081001, end: 20081220
  5. GABITRIL [Concomitant]
  6. TEGRETOL [Concomitant]
  7. ATIVAN [Concomitant]
  8. NAMENDA [Concomitant]
  9. EXELON [Concomitant]
  10. COUMADIN [Concomitant]
  11. LISINOPRIL [Concomitant]
  12. AMLODIPINE [Concomitant]
  13. CLONIDINE [Concomitant]
  14. NOVOLOG [Concomitant]
  15. LEVEMIR [Concomitant]
  16. IMDUR [Concomitant]
  17. FLOMAX [Concomitant]
  18. ACETAMINOPHEN [Concomitant]
  19. THIAMINE HCI [Concomitant]
  20. FOLIC ACID [Concomitant]
  21. CYANOCOBALAMIN [Concomitant]
  22. CALCIUM [Concomitant]
  23. VITAMIN D [Concomitant]

REACTIONS (11)
  - AGGRESSION [None]
  - AGITATION [None]
  - AUTONOMIC NERVOUS SYSTEM IMBALANCE [None]
  - BLOOD PRESSURE ABNORMAL [None]
  - CONDITION AGGRAVATED [None]
  - HALLUCINATION [None]
  - HYPERGLYCAEMIA [None]
  - POSTURE ABNORMAL [None]
  - SEDATION [None]
  - TARDIVE DYSKINESIA [None]
  - UNRESPONSIVE TO STIMULI [None]
